FAERS Safety Report 9999794 (Version 1)
Quarter: 2014Q1

REPORT INFORMATION
  Report Type: Spontaneous
  Country: JP (occurrence: JP)
  Receive Date: 20140312
  Receipt Date: 20140312
  Transmission Date: 20141002
  Serious: Yes (Death)
  Sender: FDA-Public Use
  Company Number: JP-SA-2014SA027165

PATIENT
  Age: 76 Year
  Sex: Male
  Weight: 60 kg

DRUGS (16)
  1. ELPLAT [Suspect]
     Indication: RECTAL CANCER
     Route: 041
     Dates: start: 20130527, end: 20130527
  2. ELPLAT [Suspect]
     Indication: RECTAL CANCER
     Route: 041
     Dates: start: 20130610, end: 20130610
  3. ELPLAT [Suspect]
     Indication: RECTAL CANCER
     Route: 041
     Dates: start: 20130624, end: 20130624
  4. ELPLAT [Suspect]
     Indication: RECTAL CANCER
     Route: 041
     Dates: start: 20130708, end: 20130708
  5. ELPLAT [Suspect]
     Indication: RECTAL CANCER
     Route: 041
     Dates: start: 20130722, end: 20130722
  6. ELPLAT [Suspect]
     Indication: RECTAL CANCER
     Route: 041
     Dates: start: 20130805, end: 20130805
  7. ELPLAT [Suspect]
     Indication: RECTAL CANCER
     Route: 041
     Dates: start: 20130819, end: 20130819
  8. ELPLAT [Suspect]
     Indication: RECTAL CANCER
     Route: 041
     Dates: start: 20130902, end: 20130902
  9. ELPLAT [Suspect]
     Indication: RECTAL CANCER
     Route: 041
     Dates: start: 20130917, end: 20130917
  10. ELPLAT [Suspect]
     Indication: RECTAL CANCER
     Route: 041
     Dates: start: 20131007, end: 20131007
  11. ELPLAT [Suspect]
     Indication: RECTAL CANCER
     Route: 041
     Dates: start: 20131021, end: 20131021
  12. LEVOFOLINATE [Concomitant]
     Dosage: IV INFUSION
     Dates: start: 20130527, end: 20131021
  13. 5 FU [Concomitant]
     Dates: start: 20130527, end: 20131021
  14. FUNGUARD [Concomitant]
     Dates: start: 20131210
  15. CANCIDAS [Concomitant]
     Dates: start: 20131213
  16. NORADRENALINE [Concomitant]
     Dates: start: 20131210

REACTIONS (2)
  - Candida infection [Fatal]
  - Sepsis [Fatal]
